FAERS Safety Report 6165342-0 (Version None)
Quarter: 2009Q2

REPORT INFORMATION
  Report Type: 
  Country: None (occurrence: None)
  Receive Date: 20090421
  Receipt Date: 20090421
  Transmission Date: 20091009
  Serious: No
  Sender: FDA-Public Use
  Company Number: None

PATIENT
  Sex: Male
  Weight: 83.4619 kg

DRUGS (1)
  1. CEFAZOLIN 10GM APOTEX [Suspect]
     Indication: BACTERAEMIA
     Dosage: 200MG Q8H IV
     Route: 042
     Dates: start: 20090418, end: 20090420

REACTIONS (3)
  - PRURITUS [None]
  - RASH [None]
  - URTICARIA [None]
